FAERS Safety Report 8375744-X (Version None)
Quarter: 2012Q2

REPORT INFORMATION
  Report Type: 
  Country: None (occurrence: None)
  Receive Date: 20120518
  Receipt Date: 20120518
  Transmission Date: 20120825
  Serious: Yes (Hospitalization)
  Sender: FDA-Public Use
  Company Number: None

PATIENT
  Age: 56 Year
  Sex: Male
  Weight: 93.5 kg

DRUGS (1)
  1. DANAZOL [Suspect]
     Indication: IDIOPATHIC THROMBOCYTOPENIC PURPURA
     Dosage: 600 MG EVERY DAY PO
     Route: 048
     Dates: start: 20120416, end: 20120501

REACTIONS (12)
  - CHROMATURIA [None]
  - BLOOD CREATININE INCREASED [None]
  - MALAISE [None]
  - INTERNATIONAL NORMALISED RATIO ABNORMAL [None]
  - HEPATIC ENZYME INCREASED [None]
  - FAECES DISCOLOURED [None]
  - OCULAR ICTERUS [None]
  - ASTHENIA [None]
  - DECREASED APPETITE [None]
  - HYPOKALAEMIA [None]
  - JAUNDICE [None]
  - BLOOD BILIRUBIN INCREASED [None]
